FAERS Safety Report 23184990 (Version 2)
Quarter: 2023Q4

REPORT INFORMATION
  Report Type: Report from Study
  Country: FR (occurrence: FR)
  Receive Date: 20231115
  Receipt Date: 20231222
  Transmission Date: 20240110
  Serious: Yes (Death)
  Sender: FDA-Public Use
  Company Number: FR-002147023-NVSC2023FR242697

PATIENT
  Age: 60 Year
  Sex: Male

DRUGS (2)
  1. PLUVICTO [Suspect]
     Active Substance: LUTETIUM LU-177 VIPIVOTIDE TETRAXETAN
     Indication: Prostate cancer
     Dosage: 6710 MBQ
     Route: 042
     Dates: start: 20230629, end: 20230629
  2. PLUVICTO [Suspect]
     Active Substance: LUTETIUM LU-177 VIPIVOTIDE TETRAXETAN
     Dosage: 6763 MBQ, ONCE (2ND CYCLE)
     Route: 065
     Dates: start: 20230809, end: 20230809

REACTIONS (7)
  - Ganglioglioma [Fatal]
  - Glioblastoma [Fatal]
  - Second primary malignancy [Fatal]
  - Asthenia [Fatal]
  - General physical health deterioration [Fatal]
  - Skin discolouration [Unknown]
  - Fatigue [Unknown]

NARRATIVE: CASE EVENT DATE: 20230829
